FAERS Safety Report 7365446-0 (Version None)
Quarter: 2011Q1

REPORT INFORMATION
  Report Type: 
  Country: None (occurrence: None)
  Receive Date: 20110317
  Receipt Date: 20110317
  Transmission Date: 20110831
  Serious: Yes (Hospitalization)
  Sender: FDA-Public Use
  Company Number: None

PATIENT
  Sex: Male
  Weight: 35.1 kg

DRUGS (11)
  1. HUMIRA [Concomitant]
  2. BUDESONIDE [Concomitant]
  3. FLAGYL [Concomitant]
  4. NUTROPIN [Suspect]
     Indication: BODY HEIGHT BELOW NORMAL
     Dosage: 1.6 MG QD SUBQ
     Route: 058
     Dates: start: 20011101, end: 20040801
  5. ENDOCORT [Concomitant]
  6. MEDROL [Concomitant]
  7. FLAGYL [Concomitant]
  8. OMEPRAZOLE [Concomitant]
  9. CIPRO [Concomitant]
  10. MERCAPTOPURINE [Concomitant]
  11. PENTASA [Concomitant]

REACTIONS (1)
  - T-CELL LYMPHOMA [None]
